FAERS Safety Report 6438630-8 (Version None)
Quarter: 2009Q4

REPORT INFORMATION
  Report Type: 
  Country: None (occurrence: None)
  Receive Date: 20091110
  Receipt Date: 20091026
  Transmission Date: 20100525
  Serious: Yes (Hospitalization, Other)
  Sender: FDA-Public Use
  Company Number: 2009AC000313

PATIENT
  Age: 71 Year
  Sex: Female
  Weight: 62.1428 kg

DRUGS (16)
  1. DIGOXIN [Suspect]
     Dosage: UNKNOWN;PO
     Route: 048
     Dates: start: 20070531, end: 20080421
  2. LIPITOR [Concomitant]
  3. COUMADIN [Concomitant]
  4. SYNTHROID [Concomitant]
  5. DILTIAZEM [Concomitant]
  6. METOPROLOL TARTRATE [Concomitant]
  7. HYDROCHLOROTHIAZIDE [Concomitant]
  8. CALCIUM [Concomitant]
  9. OMEPRAZOLE [Concomitant]
  10. NARVASC [Concomitant]
  11. SOTALOL HCL [Concomitant]
  12. PRILOSEC [Concomitant]
  13. MAXZIDE [Concomitant]
  14. PREMARIN [Concomitant]
  15. NORTRIPTYLINE HCL [Concomitant]
  16. CALTRATE [Concomitant]

REACTIONS (24)
  - ANHEDONIA [None]
  - ANXIETY [None]
  - ATRIAL FIBRILLATION [None]
  - BALANCE DISORDER [None]
  - BRADYCARDIA [None]
  - CARDIAC PACEMAKER INSERTION [None]
  - CHEST DISCOMFORT [None]
  - CHOLELITHIASIS [None]
  - DEAFNESS [None]
  - DRUG TOXICITY [None]
  - ECONOMIC PROBLEM [None]
  - FATIGUE [None]
  - HYPOTENSION [None]
  - INTERNATIONAL NORMALISED RATIO INCREASED [None]
  - MULTIPLE INJURIES [None]
  - MUSCLE SPASMS [None]
  - MYALGIA [None]
  - NEUROPATHY PERIPHERAL [None]
  - OVERDOSE [None]
  - PAIN [None]
  - PALPITATIONS [None]
  - QUALITY OF LIFE DECREASED [None]
  - SINUSITIS [None]
  - THYROID DISORDER [None]
